FAERS Safety Report 10393498 (Version 2)
Quarter: 2014Q3

REPORT INFORMATION
  Report Type: Spontaneous
  Country: US (occurrence: US)
  Receive Date: 20140819
  Receipt Date: 20140827
  Transmission Date: 20150326
  Serious: Yes (Hospitalization, Other)
  Sender: FDA-Public Use
  Company Number: US-PFIZER INC-2014229604

PATIENT
  Age: 24 Year
  Sex: Female

DRUGS (3)
  1. HYDROMORPHONE HYDROCHLORIDE. [Suspect]
     Active Substance: HYDROMORPHONE HYDROCHLORIDE
     Indication: SICKLE CELL ANAEMIA WITH CRISIS
     Dosage: UNK
     Route: 048
  2. MORPHINE SULFATE. [Suspect]
     Active Substance: MORPHINE SULFATE
     Indication: SICKLE CELL ANAEMIA WITH CRISIS
     Dosage: 45 MG, 2X/DAY
     Route: 048
  3. HYDROMORPHONE HYDROCHLORIDE. [Suspect]
     Active Substance: HYDROMORPHONE HYDROCHLORIDE
     Indication: SICKLE CELL ANAEMIA WITH CRISIS
     Dosage: (1 MG EVERY 2 H) UNTIL THE PAIN SUBSIDES OVER A COURSE OF 5 TO 7 DAYS
     Route: 042

REACTIONS (1)
  - Secondary adrenocortical insufficiency [Recovered/Resolved]
